FAERS Safety Report 6004765-7 (Version None)
Quarter: 2008Q4

REPORT INFORMATION
  Report Type: 
  Country: None (occurrence: None)
  Receive Date: 20081216
  Receipt Date: 20081209
  Transmission Date: 20090506
  Serious: Yes (Hospitalization)
  Sender: FDA-Public Use
  Company Number: US-PFIZER INC-2004083355

PATIENT
  Sex: Male
  Weight: 102.9 kg

DRUGS (2)
  1. INHALED HUMAN INSULIN [Suspect]
     Indication: TYPE 1 DIABETES MELLITUS
     Route: 055
     Dates: start: 20021028
  2. *INSULIN GLARGINE [Suspect]
     Indication: TYPE 1 DIABETES MELLITUS
     Dosage: 36 IU, 1X/DAY
     Route: 058
     Dates: start: 20021028

REACTIONS (1)
  - NEPHROLITHIASIS [None]
